FAERS Safety Report 24167834 (Version 1)
Quarter: 2024Q3

REPORT INFORMATION
  Report Type: Spontaneous
  Country: US (occurrence: US)
  Receive Date: 20240802
  Receipt Date: 20240802
  Transmission Date: 20241017
  Serious: Yes (Hospitalization, Other)
  Sender: TEVA
  Company Number: US-TEVA-VS-3228804

PATIENT
  Age: 62 Year

DRUGS (1)
  1. AUSTEDO XR [Suspect]
     Active Substance: DEUTETRABENAZINE
     Indication: Dyskinesia
     Route: 065

REACTIONS (4)
  - Parkinsonism [Unknown]
  - Tardive dyskinesia [Unknown]
  - Product use in unapproved indication [Unknown]
  - Adverse event [Unknown]
